FAERS Safety Report 20622172 (Version 1)
Quarter: 2022Q1

REPORT INFORMATION
  Report Type: Spontaneous
  Country: PL (occurrence: PL)
  Receive Date: 20220322
  Receipt Date: 20220322
  Transmission Date: 20220423
  Serious: Yes (Other)
  Sender: FDA-Public Use
  Company Number: PL-BAYER-2022A040042

PATIENT
  Sex: Female

DRUGS (1)
  1. BETAFERON [Suspect]
     Active Substance: INTERFERON BETA-1B
     Indication: Multiple sclerosis
     Dosage: UNK

REACTIONS (4)
  - Multiple sclerosis relapse [None]
  - Injection site inflammation [None]
  - Gait inability [None]
  - Injection site atrophy [Recovering/Resolving]
